FAERS Safety Report 6366554-3 (Version None)
Quarter: 2009Q3

REPORT INFORMATION
  Report Type: 
  Country: None (occurrence: None)
  Receive Date: 20090921
  Receipt Date: 20090915
  Transmission Date: 20100115
  Serious: Yes (Hospitalization, Other)
  Sender: FDA-Public Use
  Company Number: JP-BRISTOL-MYERS SQUIBB COMPANY-14683031

PATIENT
  Age: 37 Year
  Sex: Male
  Weight: 52 kg

DRUGS (10)
  1. ABILIFY [Suspect]
     Indication: SCHIZOPHRENIA
     Dosage: 14AP-13MY,04-06JUN:12MG 14-20MY,26JUN09-ONG:18MG 21-27MY:12MGBID 28MY-3JUN:6MGTID 18-25JUN:6MG
     Route: 048
     Dates: start: 20090414
  2. AKINETON [Suspect]
     Dosage: FORM TABS
     Route: 048
     Dates: start: 20090528, end: 20090603
  3. BROTIZOLAM [Concomitant]
     Dosage: TABS
     Dates: start: 20090407
  4. KLARICID [Concomitant]
     Dosage: TABS
     Dates: start: 20090422, end: 20090621
  5. MUCODYNE [Concomitant]
     Dosage: TABS
     Dates: start: 20090415, end: 20090608
  6. UNASYN [Concomitant]
     Dosage: INJECTION
     Dates: start: 20090602, end: 20090603
  7. CEFOTIAM HCL [Concomitant]
     Dosage: INJECTION
     Dates: start: 20090604, end: 20090615
  8. VEEN-D [Concomitant]
     Dosage: INJECTION
     Dates: start: 20090602, end: 20090615
  9. KN SOLUTION MG3 [Concomitant]
     Dosage: KN- 3 (MAINTENANCE MEDIUM(6)INJECTION
     Dates: start: 20090604, end: 20090615
  10. AMINO ACID+CARBOHYDRATE+ELECTR [Concomitant]
     Dosage: INJ; BFLUID
     Dates: start: 20090603, end: 20090603

REACTIONS (3)
  - NEUROLEPTIC MALIGNANT SYNDROME [None]
  - PROSTATIC ABSCESS [None]
  - SINUSITIS [None]
